FAERS Safety Report 17689984 (Version 3)
Quarter: 2023Q2

REPORT INFORMATION
  Report Type: Spontaneous
  Country: US (occurrence: None)
  Receive Date: 20200421
  Receipt Date: 20230523
  Transmission Date: 20230722
  Serious: Yes (Other)
  Sender: FDA-Public Use
  Company Number: 2020SE52021

PATIENT
  Age: 720 Month
  Sex: Female
  Weight: 98.9 kg

DRUGS (49)
  1. NEXIUM [Suspect]
     Active Substance: ESOMEPRAZOLE MAGNESIUM
     Indication: Dyspepsia
     Route: 048
     Dates: start: 199001, end: 200812
  2. NEXIUM [Suspect]
     Active Substance: ESOMEPRAZOLE MAGNESIUM
     Indication: Gastrooesophageal reflux disease
     Route: 048
     Dates: start: 199001, end: 200812
  3. NEXIUM [Suspect]
     Active Substance: ESOMEPRAZOLE MAGNESIUM
     Indication: Dyspepsia
     Dosage: 3 TIMES DAILY
     Route: 048
     Dates: start: 2012
  4. NEXIUM [Suspect]
     Active Substance: ESOMEPRAZOLE MAGNESIUM
     Indication: Gastrooesophageal reflux disease
     Dosage: 3 TIMES DAILY
     Route: 048
     Dates: start: 2012
  5. NEXIUM 24HR [Suspect]
     Active Substance: ESOMEPRAZOLE MAGNESIUM
     Route: 048
  6. PRILOSEC [Suspect]
     Active Substance: OMEPRAZOLE MAGNESIUM
     Indication: Dyspepsia
     Route: 048
     Dates: start: 199001, end: 200812
  7. PRILOSEC [Suspect]
     Active Substance: OMEPRAZOLE MAGNESIUM
     Indication: Gastrooesophageal reflux disease
     Route: 048
     Dates: start: 199001, end: 200812
  8. PRILOSEC [Suspect]
     Active Substance: OMEPRAZOLE MAGNESIUM
     Indication: Dyspepsia
     Dosage: 3 TIMES DAILY
     Route: 048
     Dates: start: 1987, end: 2006
  9. PRILOSEC [Suspect]
     Active Substance: OMEPRAZOLE MAGNESIUM
     Indication: Gastrooesophageal reflux disease
     Dosage: 3 TIMES DAILY
     Route: 048
     Dates: start: 1987, end: 2006
  10. PRILOSEC [Suspect]
     Active Substance: OMEPRAZOLE MAGNESIUM
     Indication: Dyspepsia
     Dosage: GENERIC- DAILY
     Route: 065
     Dates: start: 2006
  11. PRILOSEC [Suspect]
     Active Substance: OMEPRAZOLE MAGNESIUM
     Indication: Gastrooesophageal reflux disease
     Dosage: GENERIC- DAILY
     Route: 065
     Dates: start: 2006
  12. PRILOSEC OTC [Suspect]
     Active Substance: OMEPRAZOLE MAGNESIUM
     Route: 048
     Dates: start: 199001, end: 200812
  13. PEPCID [Suspect]
     Active Substance: FAMOTIDINE
     Indication: Dyspepsia
     Dosage: 3 TIMES DAILY
     Dates: start: 1980, end: 2000
  14. PEPCID [Suspect]
     Active Substance: FAMOTIDINE
     Indication: Gastrooesophageal reflux disease
     Dosage: 3 TIMES DAILY
     Dates: start: 1980, end: 2000
  15. RANITIDINE [Suspect]
     Active Substance: RANITIDINE
     Indication: Dyspepsia
     Dosage: NIGHTLY
     Route: 065
     Dates: start: 2016, end: 2020
  16. RANITIDINE [Suspect]
     Active Substance: RANITIDINE
     Indication: Gastrooesophageal reflux disease
     Dosage: NIGHTLY
     Route: 065
     Dates: start: 2016, end: 2020
  17. ZANTAC [Suspect]
     Active Substance: RANITIDINE HYDROCHLORIDE
     Indication: Dyspepsia
     Dosage: 3 TIMES DAILY
     Dates: start: 1980
  18. ZANTAC [Suspect]
     Active Substance: RANITIDINE HYDROCHLORIDE
     Indication: Gastrooesophageal reflux disease
     Dosage: 3 TIMES DAILY
     Dates: start: 1980
  19. ZANTAC [Suspect]
     Active Substance: RANITIDINE HYDROCHLORIDE
     Indication: Dyspepsia
     Dates: start: 2005, end: 2008
  20. ZANTAC [Suspect]
     Active Substance: RANITIDINE HYDROCHLORIDE
     Indication: Gastrooesophageal reflux disease
     Dates: start: 2005, end: 2008
  21. ZANTAC [Suspect]
     Active Substance: RANITIDINE HYDROCHLORIDE
     Indication: Dyspepsia
     Dates: start: 2008, end: 2015
  22. ZANTAC [Suspect]
     Active Substance: RANITIDINE HYDROCHLORIDE
     Indication: Gastrooesophageal reflux disease
     Dates: start: 2008, end: 2015
  23. DICYCLOMINE [Concomitant]
     Active Substance: DICYCLOMINE HYDROCHLORIDE
     Indication: Abdominal pain upper
     Dates: start: 20200513
  24. OXYCODONE [Concomitant]
     Active Substance: OXYCODONE
     Indication: Pain in extremity
     Dates: start: 2006
  25. CYMBALTA [Concomitant]
     Active Substance: DULOXETINE HYDROCHLORIDE
     Indication: Depression
     Dates: start: 2006
  26. POTASSIUM [Concomitant]
     Active Substance: POTASSIUM
     Indication: Drug abuse
     Dates: start: 2006
  27. BUMETANIDE [Concomitant]
     Active Substance: BUMETANIDE
     Indication: Blood pressure abnormal
     Dates: start: 2008
  28. ATORVASTATIN [Concomitant]
     Active Substance: ATORVASTATIN
     Indication: Blood cholesterol abnormal
     Dates: start: 202005
  29. LISINOPRIL [Concomitant]
     Active Substance: LISINOPRIL
     Indication: Drug abuse
     Dates: start: 2006
  30. VITAMINS [Concomitant]
     Active Substance: VITAMINS
     Indication: Drug abuse
     Dates: start: 2006
  31. MAGNESIUM [Concomitant]
     Active Substance: MAGNESIUM
     Indication: Bone disorder
     Dates: start: 2004
  32. TART CHERRY JUICE [Concomitant]
     Indication: Inflammation
     Dates: start: 2015
  33. PAU D^ARCO [Concomitant]
     Indication: Inflammation
     Dates: start: 2013
  34. ASPIRIN [Concomitant]
     Active Substance: ASPIRIN
     Indication: Cardiac disorder
  35. GINKGO [Concomitant]
     Active Substance: GINKGO
     Indication: Memory impairment
     Dates: start: 2019
  36. GAS-X [Concomitant]
     Active Substance: DIMETHICONE
     Dates: start: 2018, end: 2019
  37. TUMS [Concomitant]
     Active Substance: CALCIUM CARBONATE
     Dosage: 5-10 A DAY
     Dates: start: 1970, end: 2000
  38. CELEBREX [Concomitant]
     Active Substance: CELECOXIB
     Dosage: 5-10 A DAY
     Dates: start: 1970, end: 2000
  39. MOMETASONE [Concomitant]
     Active Substance: MOMETASONE
     Dosage: 5-10 A DAY
     Dates: start: 1970, end: 2000
  40. PRAVACHOL [Concomitant]
     Active Substance: PRAVASTATIN SODIUM
     Dosage: 5-10 A DAY
     Dates: start: 1970, end: 2000
  41. POTASSIUM CHLORIDE [Concomitant]
     Active Substance: POTASSIUM CHLORIDE
     Dosage: 5-10 A DAY
     Dates: start: 1970, end: 2000
  42. DULOXETINE [Concomitant]
     Active Substance: DULOXETINE
     Dosage: 5-10 A DAY
     Dates: start: 1970, end: 2000
  43. ALBUTEROL [Concomitant]
     Active Substance: ALBUTEROL
     Dosage: 5-10 A DAY
     Dates: start: 1970, end: 2000
  44. BETAMETHASONE VALERATE/ALLERGENS, HOUSE DUST + MITE/ALLERGENS, MOULD + [Concomitant]
     Dosage: 5-10 A DAY
     Dates: start: 1970, end: 2000
  45. HYDROCODONE [Concomitant]
     Active Substance: HYDROCODONE
     Dosage: 5-10 A DAY
     Dates: start: 1970, end: 2000
  46. FLUTICASONE [Concomitant]
     Active Substance: FLUTICASONE
     Dosage: 5-10 A DAY
     Dates: start: 1970, end: 2000
  47. GABAPENTIN [Concomitant]
     Active Substance: GABAPENTIN
     Dosage: 5-10 A DAY
     Dates: start: 1970, end: 2000
  48. TRIAMCINOLONE [Concomitant]
     Active Substance: TRIAMCINOLONE
     Dosage: 5-10 A DAY
     Dates: start: 1970, end: 2000
  49. NAPROXEN [Concomitant]
     Active Substance: NAPROXEN
     Dosage: 5-10 A DAY
     Dates: start: 1970, end: 2000

REACTIONS (8)
  - Chronic kidney disease [Not Recovered/Not Resolved]
  - Renal failure [Unknown]
  - Renal injury [Unknown]
  - Diverticulitis [Not Recovered/Not Resolved]
  - Polyp [Not Recovered/Not Resolved]
  - Abdominal pain upper [Not Recovered/Not Resolved]
  - Flatulence [Unknown]
  - Dyspepsia [Unknown]

NARRATIVE: CASE EVENT DATE: 20060901
